FAERS Safety Report 4847273-9 (Version None)
Quarter: 2005Q4

REPORT INFORMATION
  Report Type: 
  Country: None (occurrence: None)
  Receive Date: 20051205
  Receipt Date: 20051127
  Transmission Date: 20060501
  Serious: Yes (Hospitalization)
  Sender: FDA-Public Use
  Company Number: 2005160154

PATIENT
  Age: 35 Year
  Sex: Female
  Weight: 70.3075 kg

DRUGS (5)
  1. ACTIFED COLD + ALLERGY (PSEUDOEPHEDRINE, TRIPROLIDINE) [Suspect]
     Indication: NASAL CONGESTION
     Dosage: 2 BOXES OF 12, 1 BOX OF 24, ORAL
     Route: 048
     Dates: start: 20051101, end: 20051101
  2. ACTIFED COLD AND SINUS (PARACETAMOL, PSEUDOEPHEDRINE, CHLORPHENIRAMINE [Suspect]
     Indication: NASAL CONGESTION
     Dosage: 1 BOX OF 24, ORAL
     Route: 048
     Dates: start: 20051101, end: 20051101
  3. DRUG (DRUG) [Suspect]
     Indication: NASAL CONGESTION
     Dosage: 2 BOXES OF 24 ACTIFED ^KNOCKOFF^, ORAL
     Route: 048
     Dates: start: 20051101, end: 20051101
  4. DRUG (DRUG) [Suspect]
     Indication: NASAL CONGESTION
     Dosage: 2/3 OF 100 COUNT BOTTLE, ^BRAND SIMILAR^, ORAL
     Route: 048
     Dates: start: 20051101, end: 20051101
  5. PAROXETINE HCL [Concomitant]

REACTIONS (3)
  - ARTERIAL HAEMORRHAGE [None]
  - CONSTIPATION [None]
  - GASTROINTESTINAL DISORDER [None]
